FAERS Safety Report 15188677 (Version 6)
Quarter: 2019Q1

REPORT INFORMATION
  Report Type: Spontaneous
  Country: US (occurrence: US)
  Receive Date: 20180724
  Receipt Date: 20190215
  Transmission Date: 20190417
  Serious: Yes (Hospitalization, Other)
  Sender: FDA-Public Use
  Company Number: US-PFIZER INC-2018295238

PATIENT
  Age: 84 Year
  Sex: Female
  Weight: 54.42 kg

DRUGS (8)
  1. OCUVITE [Concomitant]
     Active Substance: VITAMINS
     Dosage: UNK (3 YEARS)
  2. LATANOPROST. [Suspect]
     Active Substance: LATANOPROST
     Dosage: 2 GTT, 1X/DAY (1 DROP IN EACH EYE 9 PM 125MCG/25ML))
     Route: 047
     Dates: start: 201801, end: 20190116
  3. LEVOTHYROXINE. [Concomitant]
     Active Substance: LEVOTHYROXINE
     Dosage: UNK
     Dates: start: 2006
  4. SERTRALINE [Concomitant]
     Active Substance: SERTRALINE HYDROCHLORIDE
     Dosage: UNK
     Dates: start: 20180703
  5. LATANOPROST. [Suspect]
     Active Substance: LATANOPROST
     Dosage: 2 GTT, 1X/DAY (ONCE A NIGHT IN EACH EYE AT BEDTIME, ONE DROP)
     Route: 047
  6. OSTEO BI-FLEX JOINT + HEART [Concomitant]
     Dosage: UNK (2 YEARS)
  7. AMITRIPTYLINE [Concomitant]
     Active Substance: AMITRIPTYLINE
     Indication: POOR QUALITY SLEEP
     Dosage: 10 MG, 1X/DAY (ONCE A NIGHT)
     Dates: start: 20180703
  8. LATANOPROST. [Suspect]
     Active Substance: LATANOPROST
     Indication: GLAUCOMA
     Dosage: 2 GTT, 1X/DAY (ONCE A NIGHT IN EACH EYE AT BEDTIME, ONE DROP)
     Route: 047

REACTIONS (10)
  - Rash [Not Recovered/Not Resolved]
  - Asthma [Unknown]
  - Dark circles under eyes [Not Recovered/Not Resolved]
  - Drug ineffective [Unknown]
  - Contusion [Not Recovered/Not Resolved]
  - Dermatitis infected [Not Recovered/Not Resolved]
  - Cough [Not Recovered/Not Resolved]
  - Chest discomfort [Unknown]
  - Choking [Unknown]
  - Pruritus [Not Recovered/Not Resolved]
